FAERS Safety Report 10239578 (Version 1)
Quarter: 2014Q2

REPORT INFORMATION
  Report Type: Spontaneous
  Country: US (occurrence: US)
  Receive Date: 20140616
  Receipt Date: 20140616
  Transmission Date: 20141212
  Serious: Yes (Hospitalization, Other)
  Sender: FDA-Public Use
  Company Number: US-GILEAD-2014-0105250

PATIENT
  Age: 46 Year
  Sex: Male

DRUGS (11)
  1. SOVALDI [Suspect]
     Indication: CHRONIC HEPATITIS C
     Dosage: 400 MG, QD
     Route: 065
  2. RIBAPAK [Suspect]
     Indication: CHRONIC HEPATITIS C
     Dosage: 1200 MG, QD
     Route: 065
     Dates: start: 20140604
  3. CARAFATE [Concomitant]
  4. ALDACTONE                          /00006201/ [Concomitant]
  5. LASIX                              /00032601/ [Concomitant]
  6. REGLAN                             /00041901/ [Concomitant]
  7. XIFAXAN [Concomitant]
  8. NEXIUM                             /01479302/ [Concomitant]
  9. AMITRIPTYLINE [Concomitant]
  10. CEPHALEXIN                         /00145501/ [Concomitant]
  11. ACETAMINOPHEN W/HYDROCODONE [Concomitant]

REACTIONS (2)
  - Suicidal ideation [Unknown]
  - Depression [Recovering/Resolving]
